FAERS Safety Report 8601434 (Version 5)
Quarter: 2013Q1

REPORT INFORMATION
  Report Type: Spontaneous
  Country: US (occurrence: US)
  Receive Date: 20120606
  Receipt Date: 20130226
  Transmission Date: 20140127
  Serious: No
  Sender: FDA-Public Use
  Company Number: US-PFIZER INC-2012131748

PATIENT
  Age: 60 Year
  Sex: Female
  Weight: 70 kg

DRUGS (2)
  1. CLEOCIN [Suspect]
     Indication: VAGINAL INFECTION
     Dosage: 2%, 40G SINGLE TUBE, UNK
     Route: 067
     Dates: start: 20120530, end: 20120531
  2. CLEOCIN [Suspect]
     Indication: ESCHERICHIA INFECTION

REACTIONS (3)
  - Product quality issue [Unknown]
  - Scratch [Unknown]
  - Injury [Unknown]
